FAERS Safety Report 24367085 (Version 3)
Quarter: 2024Q4

REPORT INFORMATION
  Report Type: Spontaneous
  Country: US (occurrence: US)
  Receive Date: 20240926
  Receipt Date: 20241030
  Transmission Date: 20250114
  Serious: Yes (Death, Hospitalization)
  Sender: KARYOPHARM THERAPEUTICS
  Company Number: US-KARYOPHARM-2024KPT001560

PATIENT

DRUGS (14)
  1. XPOVIO [Suspect]
     Active Substance: SELINEXOR
     Indication: Angiocentric lymphoma
     Dosage: 40 MG, WEEKLY
     Route: 048
     Dates: start: 20240917
  2. XPOVIO [Suspect]
     Active Substance: SELINEXOR
     Dosage: 60 MG, WEEKLY
     Route: 048
     Dates: start: 2024
  3. AMLODIPINE [Concomitant]
     Active Substance: AMLODIPINE BESYLATE
  4. ATOVAQUONE [Concomitant]
     Active Substance: ATOVAQUONE
  5. BARACLUDE [Concomitant]
     Active Substance: ENTECAVIR
  6. DEXAMETHASONE [Concomitant]
     Active Substance: DEXAMETHASONE
  7. FAMCICLOVIR [Concomitant]
     Active Substance: FAMCICLOVIR
  8. FAMOTIDINE [Concomitant]
     Active Substance: FAMOTIDINE
  9. FLUCONAZOLE [Concomitant]
     Active Substance: FLUCONAZOLE
  10. GABAPENTIN [Concomitant]
     Active Substance: GABAPENTIN
  11. LEVOTHYROXINE [Concomitant]
     Active Substance: LEVOTHYROXINE
  12. OXYCODONE [Concomitant]
     Active Substance: OXYCODONE
  13. PREVYMIS [Concomitant]
     Active Substance: LETERMOVIR
  14. PROCHLORPERAZINE [Concomitant]
     Active Substance: PROCHLORPERAZINE

REACTIONS (3)
  - Death [Fatal]
  - Loss of consciousness [Unknown]
  - Off label use [Unknown]

NARRATIVE: CASE EVENT DATE: 20240917
